FAERS Safety Report 10172448 (Version 2)
Quarter: 2014Q3

REPORT INFORMATION
  Report Type: Spontaneous
  Country: US (occurrence: US)
  Receive Date: 20140515
  Receipt Date: 20140724
  Transmission Date: 20150326
  Serious: Yes (Hospitalization, Other)
  Sender: FDA-Public Use
  Company Number: US-BAYER-2014-071056

PATIENT
  Age: 25 Year
  Sex: Female
  Weight: 58.96 kg

DRUGS (1)
  1. MIRENA [Suspect]
     Active Substance: LEVONORGESTREL
     Indication: CONTRACEPTION
     Dosage: 20 MCG/24HR, CONT
     Route: 015
     Dates: start: 20090811, end: 20100309

REACTIONS (6)
  - Genital haemorrhage [None]
  - Procedural pain [None]
  - Post procedural discomfort [None]
  - Uterine perforation [None]
  - Medical device pain [None]
  - Injury [None]

NARRATIVE: CASE EVENT DATE: 201003
